FAERS Safety Report 9342137 (Version 1)
Quarter: 2013Q2

REPORT INFORMATION
  Report Type: Spontaneous
  Country: DE (occurrence: None)
  Receive Date: 20130606
  Receipt Date: 20130606
  Transmission Date: 20140414
  Serious: Yes (Hospitalization)
  Sender: FDA-Public Use
  Company Number: 1739431

PATIENT
  Age: 56 Year
  Sex: Female

DRUGS (8)
  1. (CARBOPLATIN) [Suspect]
     Indication: OVARIAN CANCER
     Dosage: AREA UNDER THE CURVE OF 4 (CYCLICAL)
  2. (CARBOPLATIN) [Suspect]
     Indication: NEOPLASM RECURRENCE
     Dosage: AREA UNDER THE CURVE OF 4 (CYCLICAL)
  3. (CARBOPLATIN) [Suspect]
     Indication: METASTASES TO LIVER
     Dosage: AREA UNDER THE CURVE OF 4 (CYCLICAL)
  4. GEMCITABINE HYDROCHLORIDE [Suspect]
     Indication: NEOPLASM RECURRENCE
  5. GEMCITABINE HYDROCHLORIDE [Suspect]
     Indication: METASTASES TO LIVER
  6. PACLITAXEL [Suspect]
     Indication: OVARIAN CANCER
  7. BEVACIZUMAB [Suspect]
     Indication: NEOPLASM RECURRENCE
  8. BEVACIZUMAB [Suspect]
     Indication: METASTASES TO LIVER

REACTIONS (9)
  - Respiratory distress [None]
  - Chest pain [None]
  - Metastases to liver [None]
  - Infection [None]
  - Pneumothorax [None]
  - Pleural effusion [None]
  - Metastases to lung [None]
  - Empyema [None]
  - Pneumonia [None]
